FAERS Safety Report 6845040-8 (Version None)
Quarter: 2010Q3

REPORT INFORMATION
  Report Type: 
  Country: None (occurrence: None)
  Receive Date: 20100715
  Receipt Date: 20070812
  Transmission Date: 20110219
  Serious: Yes (Other)
  Sender: FDA-Public Use
  Company Number: US-PFIZER INC-2007068025

PATIENT
  Sex: Female

DRUGS (1)
  1. CHANTIX [Suspect]
     Indication: SMOKING CESSATION THERAPY
     Dates: start: 20070701

REACTIONS (5)
  - AGGRESSION [None]
  - DRUG INEFFECTIVE [None]
  - INFLUENZA [None]
  - MALAISE [None]
  - VOMITING [None]
